FAERS Safety Report 15757917 (Version 2)
Quarter: 2019Q1

REPORT INFORMATION
  Report Type: Report from Study
  Country: AT (occurrence: AT)
  Receive Date: 20181225
  Receipt Date: 20190109
  Transmission Date: 20190417
  Serious: Yes (Other)
  Sender: FDA-Public Use
  Company Number: AT-ACCORD-096787

PATIENT
  Age: 68 Year
  Sex: Male
  Weight: 111 kg

DRUGS (3)
  1. TACROLIMUS. [Suspect]
     Active Substance: TACROLIMUS
     Indication: PROPHYLAXIS AGAINST TRANSPLANT REJECTION
     Dosage: 4 MG, QD
     Route: 048
     Dates: start: 20160122
  2. LEFLUNOMIDE. [Concomitant]
     Active Substance: LEFLUNOMIDE
     Indication: IMMUNOSUPPRESSION
     Dosage: 20 (UNITS NOT PROVIDED), ONCE DAILY
     Route: 065
     Dates: start: 20160401
  3. PREDNISOLONE. [Concomitant]
     Active Substance: PREDNISOLONE
     Indication: IMMUNOSUPPRESSION
     Dosage: 5 (UNITS NOT PROVIDED), ONCE DAILY
     Route: 065
     Dates: start: 20160729

REACTIONS (1)
  - Aeromonas test positive [Recovered/Resolved]

NARRATIVE: CASE EVENT DATE: 20171101
